FAERS Safety Report 4392929-8 (Version None)
Quarter: 2004Q3

REPORT INFORMATION
  Report Type: 
  Country: None (occurrence: None)
  Receive Date: 20040702
  Receipt Date: 20040617
  Transmission Date: 20050211
  Serious: Yes (Hospitalization)
  Sender: FDA-Public Use
  Company Number: 2004-0007088

PATIENT
  Age: 56 Year
  Sex: Male
  Weight: 65 kg

DRUGS (3)
  1. ADEFOVIR DIPIVOXIL KIT [Suspect]
     Indication: HEPATITIS B
     Dosage: 10 MG, 1 IN 1 D, ORAL
     Route: 048
     Dates: start: 20030819, end: 20040420
  2. LAMIVUDINE (LAMIVUDINE) [Concomitant]
  3. INSULIN [Concomitant]

REACTIONS (19)
  - ALANINE AMINOTRANSFERASE INCREASED [None]
  - ASPARTATE AMINOTRANSFERASE INCREASED [None]
  - ATELECTASIS [None]
  - BACK PAIN [None]
  - BLOOD GLUCOSE ABNORMAL [None]
  - CREATININE RENAL CLEARANCE DECREASED [None]
  - DISEASE PROGRESSION [None]
  - DRUG EFFECT DECREASED [None]
  - DYSKINESIA [None]
  - HEPATIC ENCEPHALOPATHY [None]
  - LEUKOCYTOSIS [None]
  - LIVER DISORDER [None]
  - PSYCHOMOTOR AGITATION [None]
  - PULMONARY CALCIFICATION [None]
  - PYREXIA [None]
  - SPINAL COMPRESSION FRACTURE [None]
  - SPONDYLOSIS [None]
  - TONGUE ULCERATION [None]
  - TOOTH EXTRACTION [None]
